FAERS Safety Report 23283758 (Version 2)
Quarter: 2024Q4

REPORT INFORMATION
  Report Type: Spontaneous
  Country: US (occurrence: US)
  Receive Date: 20231211
  Receipt Date: 20241002
  Transmission Date: 20250114
  Serious: No
  Sender: PFIZER
  Company Number: US-PFIZER INC-PV202300195505

PATIENT
  Age: 80 Year
  Sex: Female

DRUGS (1)
  1. IBRANCE [Suspect]
     Active Substance: PALBOCICLIB
     Indication: Invasive ductal breast carcinoma
     Dosage: 100 MG, CYCLIC (100 MG CAPSULE, TAKE 1 CAPSULE DAILY ON DAYS 1-21, TAKE ONE WEEK OFF)
     Route: 048

REACTIONS (2)
  - Anxiety [Unknown]
  - Malaise [Unknown]
